FAERS Safety Report 9363609 (Version 1)
Quarter: 2013Q2

REPORT INFORMATION
  Report Type: Spontaneous
  Country: US (occurrence: US)
  Receive Date: 20130624
  Receipt Date: 20130624
  Transmission Date: 20140414
  Serious: No
  Sender: FDA-Public Use
  Company Number: PHEH2013US013285

PATIENT
  Sex: Male

DRUGS (17)
  1. GLEEVEC [Suspect]
     Dosage: 400 MG, UNK
     Route: 048
     Dates: end: 20130530
  2. METOPROLOL [Concomitant]
     Dosage: 1/2 TAB,2XDAY
     Route: 048
  3. PLAVIX [Concomitant]
     Dosage: 75 MG, QD
     Route: 048
  4. ALBUTEROL [Concomitant]
     Dosage: 300 MG, QD
     Route: 048
  5. BUPROPION HCL [Concomitant]
     Dosage: 150 MG, BID
     Route: 048
  6. ZOLPIDEM TARTRATE [Concomitant]
     Dosage: 05 MG, QD
     Route: 048
  7. LOSARTAN [Concomitant]
     Dosage: 100 MG, QD
     Route: 048
  8. CLOPIDOGREL BISULFATE [Concomitant]
     Dosage: 75 MG, QD
     Route: 048
  9. ASPIRIN [Concomitant]
     Dosage: 325 MG, QD
  10. POTASSIUM SUPPLEMENTS [Concomitant]
     Dosage: 20 MG, BID
  11. FOLIC ACID [Concomitant]
     Dosage: 800 MG, QD
  12. IRON [Concomitant]
     Dosage: 28 MG, QD
  13. MULTIVIT [Concomitant]
     Dosage: 01 DF, QD
  14. LORATADIN [Concomitant]
     Dosage: 10 MG, PRN
  15. MECLIZINE [Concomitant]
     Dosage: 25 MG, PRN(2 TABLETS,4X/4 DAY)
  16. NITROSTAT [Concomitant]
     Dosage: 0.4 MG, PRN
  17. CYCLOBENZAPRINE [Concomitant]
     Dosage: 10 MG, PRN

REACTIONS (7)
  - Hepatomegaly [Unknown]
  - Splenomegaly [Unknown]
  - Back pain [Unknown]
  - Asthenia [Unknown]
  - Arthralgia [Unknown]
  - Myalgia [Unknown]
  - Drug ineffective [Unknown]
